FAERS Safety Report 16535709 (Version 2)
Quarter: 2019Q3

REPORT INFORMATION
  Report Type: Spontaneous
  Country: US (occurrence: US)
  Receive Date: 20190705
  Receipt Date: 20190723
  Transmission Date: 20191004
  Serious: No
  Sender: FDA-Public Use
  Company Number: US-APOTEX-2019AP016447

PATIENT
  Sex: Female

DRUGS (1)
  1. FENTANYL. [Suspect]
     Active Substance: FENTANYL
     Indication: PRODUCT USED FOR UNKNOWN INDICATION
     Dosage: 25 ?G,(1/48 HOURS)
     Route: 065

REACTIONS (4)
  - Product adhesion issue [Unknown]
  - Product quality issue [Unknown]
  - Product substitution issue [Unknown]
  - Pruritus [Unknown]
